FAERS Safety Report 19693727 (Version 1)
Quarter: 2021Q3

REPORT INFORMATION
  Report Type: Spontaneous
  Country: US (occurrence: US)
  Receive Date: 20210813
  Receipt Date: 20210813
  Transmission Date: 20211014
  Serious: No
  Sender: FDA-Public Use
  Company Number: US-BAUSCH-BL-2021-024119

PATIENT
  Sex: Female

DRUGS (1)
  1. RENOVA [Suspect]
     Active Substance: TRETINOIN
     Indication: SKIN WRINKLING
     Dosage: AS NEEDED
     Route: 061
     Dates: start: 20210702, end: 20210703

REACTIONS (2)
  - Oedema [Unknown]
  - Swelling [Unknown]

NARRATIVE: CASE EVENT DATE: 202107
